FAERS Safety Report 6858915-0 (Version None)
Quarter: 2010Q3

REPORT INFORMATION
  Report Type: 
  Country: None (occurrence: None)
  Receive Date: 20100719
  Receipt Date: 20080213
  Transmission Date: 20110219
  Serious: No
  Sender: FDA-Public Use
  Company Number: US-PFIZER INC-2008016116

PATIENT
  Age: 19 Year
  Sex: Female

DRUGS (1)
  1. CHANTIX [Suspect]
     Indication: SMOKING CESSATION THERAPY
     Route: 048
     Dates: start: 20080128

REACTIONS (4)
  - DRUG DOSE OMISSION [None]
  - HEADACHE [None]
  - NAUSEA [None]
  - VOMITING [None]
